APPROVED DRUG PRODUCT: QUINIDINE GLUCONATE
Active Ingredient: QUINIDINE GLUCONATE
Strength: 324MG
Dosage Form/Route: TABLET, EXTENDED RELEASE;ORAL
Application: A089894 | Product #001
Applicant: RISING PHARMA HOLDINGS INC
Approved: Dec 15, 1988 | RLD: No | RS: No | Type: DISCN